FAERS Safety Report 9468194 (Version 1)
Quarter: 2013Q3

REPORT INFORMATION
  Report Type: Spontaneous
  Country: DK (occurrence: DK)
  Receive Date: 20130821
  Receipt Date: 20130821
  Transmission Date: 20140515
  Serious: Yes (Hospitalization, Congenital Anomaly)
  Sender: FDA-Public Use
  Company Number: DK-ASTRAZENECA-2013SE63145

PATIENT
  Sex: Male
  Weight: 3.4 kg

DRUGS (6)
  1. SEROQUEL [Suspect]
     Indication: DEPRESSION
     Route: 064
     Dates: start: 20130101, end: 20130502
  2. SEROQUEL [Suspect]
     Indication: PANIC DISORDER
     Route: 064
     Dates: start: 20130101, end: 20130502
  3. ELTROXIN [Suspect]
     Indication: HYPOTHYROIDIC GOITRE
     Route: 064
     Dates: start: 200610
  4. LINDYNETTE [Suspect]
     Indication: CONTRACEPTION
     Dosage: 75 + 30 MICROGRAMS, 1 TABLET DAILY.
     Route: 064
     Dates: end: 20130430
  5. LAMICTAL [Suspect]
     Indication: DEPRESSION
     Dosage: 200+300 MG.
     Route: 064
     Dates: start: 200407
  6. NORITREN [Suspect]
     Indication: DEPRESSION
     Route: 064
     Dates: start: 20040701

REACTIONS (3)
  - Hemivertebra [Not Recovered/Not Resolved]
  - Epispadias [Not Recovered/Not Resolved]
  - Anomaly of external ear congenital [Not Recovered/Not Resolved]
